FAERS Safety Report 18747398 (Version 1)
Quarter: 2021Q1

REPORT INFORMATION
  Report Type: Spontaneous
  Country: DE (occurrence: DE)
  Receive Date: 20210115
  Receipt Date: 20210115
  Transmission Date: 20210419
  Serious: Yes (Other)
  Sender: FDA-Public Use
  Company Number: DE-JNJFOC-20210107227

PATIENT
  Age: 5 Week
  Sex: Male
  Weight: 3.8 kg

DRUGS (1)
  1. ZAVESCA [Suspect]
     Active Substance: MIGLUSTAT
     Indication: NIEMANN-PICK DISEASE
     Route: 065

REACTIONS (4)
  - Motor developmental delay [Unknown]
  - Dependence on oxygen therapy [Recovered/Resolved]
  - Viral infection [Unknown]
  - Diarrhoea [Recovering/Resolving]
